FAERS Safety Report 5056153-8 (Version None)
Quarter: 2006Q3

REPORT INFORMATION
  Report Type: 
  Country: None (occurrence: None)
  Receive Date: 20060720
  Receipt Date: 20060710
  Transmission Date: 20061208
  Serious: Yes (Disabling)
  Sender: FDA-Public Use
  Company Number: FR-GLAXOSMITHKLINE-B0430549A

PATIENT
  Age: 41 Year
  Sex: Male

DRUGS (2)
  1. TRIZIVIR [Suspect]
     Indication: HIV INFECTION
     Dosage: 2TAB PER DAY
     Route: 048
     Dates: start: 20020204
  2. SUSTIVA [Suspect]
     Indication: HIV INFECTION
     Dosage: 1CAP PER DAY
     Route: 048
     Dates: start: 20020204

REACTIONS (4)
  - ARTHRALGIA [None]
  - OSTEONECROSIS [None]
  - PAIN [None]
  - PAIN IN EXTREMITY [None]
